FAERS Safety Report 7171060-2 (Version None)
Quarter: 2010Q4

REPORT INFORMATION
  Report Type: 
  Country: None (occurrence: None)
  Receive Date: 20101217
  Receipt Date: 20101209
  Transmission Date: 20110411
  Serious: Yes (Hospitalization)
  Sender: FDA-Public Use
  Company Number: GXKR2010PT14018

PATIENT
  Sex: Female

DRUGS (3)
  1. AMOXICILLIN AND CLAVULANATE POTASSIUM [Suspect]
     Indication: INFECTION
     Dosage: UNK
     Route: 048
     Dates: start: 20101207, end: 20101207
  2. NSAID'S [Concomitant]
     Indication: PAIN
     Dosage: UNK
     Route: 065
     Dates: start: 20101207
  3. ACETAMINOPHEN [Concomitant]
     Indication: PYREXIA
     Dosage: UNK
     Route: 065
     Dates: start: 20101207

REACTIONS (3)
  - HEADACHE [None]
  - SYNCOPE [None]
  - VOMITING [None]
